FAERS Safety Report 4515827-5 (Version None)
Quarter: 2004Q4

REPORT INFORMATION
  Report Type: 
  Country: None (occurrence: None)
  Receive Date: 20041001
  Receipt Date: 20030805
  Transmission Date: 20050328
  Serious: Yes (Hospitalization)
  Sender: FDA-Public Use
  Company Number: TPA2003A01103

PATIENT

DRUGS (2)
  1. ACTOS [Suspect]
     Dosage: PER ORAL
     Route: 048
  2. CELEBREX [Concomitant]

REACTIONS (1)
  - OEDEMA [None]
